FAERS Safety Report 8603017 (Version 3)
Quarter: 2013Q3

REPORT INFORMATION
  Report Type: Spontaneous
  Country: US (occurrence: US)
  Receive Date: 20120607
  Receipt Date: 20130830
  Transmission Date: 20140515
  Serious: No
  Sender: FDA-Public Use
  Company Number: US-PFIZER INC-2012134982

PATIENT
  Age: 53 Year
  Sex: Male
  Weight: 92.97 kg

DRUGS (3)
  1. CELEBREX [Suspect]
     Indication: OSTEOARTHRITIS
     Dosage: 200 MG, UNK
  2. LYRICA [Suspect]
     Indication: FIBROMYALGIA
     Dosage: UNK
  3. ENALAPRIL [Concomitant]
     Indication: HYPERTENSION
     Dosage: 5 MG, 1X/DAY

REACTIONS (6)
  - Intentional drug misuse [Unknown]
  - Memory impairment [Unknown]
  - Hearing impaired [Unknown]
  - Depression [Unknown]
  - Sinusitis [Unknown]
  - Pain in extremity [Unknown]
